FAERS Safety Report 21269266 (Version 1)
Quarter: 2022Q3

REPORT INFORMATION
  Report Type: Spontaneous
  Country: US (occurrence: None)
  Receive Date: 20220829
  Receipt Date: 20220829
  Transmission Date: 20221027
  Serious: No
  Sender: FDA-Public Use
  Company Number: None

PATIENT
  Sex: Female

DRUGS (1)
  1. RINVOQ [Suspect]
     Active Substance: UPADACITINIB
     Indication: Juvenile idiopathic arthritis
     Dosage: 15MG DAILY ORAL?
     Route: 048
     Dates: start: 20220719, end: 20220827

REACTIONS (1)
  - Drug ineffective [None]
